FAERS Safety Report 4385918-0 (Version None)
Quarter: 2004Q2

REPORT INFORMATION
  Report Type: 
  Country: None (occurrence: None)
  Receive Date: 20040622
  Receipt Date: 20040615
  Transmission Date: 20050107
  Serious: Yes (Other)
  Sender: FDA-Public Use
  Company Number: 001-0981-M0008055

PATIENT
  Age: 76 Year
  Sex: Male
  Weight: 83.9154 kg

DRUGS (7)
  1. ATORVASTATIN CALCIUM [Suspect]
     Indication: CORONARY ARTERY DISEASE
     Dosage: 10 MG (1 IN 1 D), ORAL
     Route: 048
     Dates: start: 19990708, end: 19990903
  2. NITROGLYCERIN [Concomitant]
  3. AMLODIPINE [Concomitant]
  4. TOCOPHEROL CONCENTRATE CAP [Concomitant]
  5. ASCORBIC ACID [Concomitant]
  6. BETACAROTENE (BETACAROTENE) [Concomitant]
  7. ACETYSLALICYLIC ACID (ACETYLSALICYLIC ACID) [Concomitant]

REACTIONS (1)
  - PROSTATE CANCER [None]
